FAERS Safety Report 6040879-3 (Version None)
Quarter: 2009Q1

REPORT INFORMATION
  Report Type: 
  Country: None (occurrence: None)
  Receive Date: 20090116
  Receipt Date: 20080618
  Transmission Date: 20090719
  Serious: No
  Sender: FDA-Public Use
  Company Number: US-BRISTOL-MYERS SQUIBB COMPANY-14232987

PATIENT
  Age: 81 Year
  Sex: Male
  Weight: 77 kg

DRUGS (2)
  1. ABILIFY [Suspect]
     Indication: DEMENTIA
     Dosage: POSSIBLY 10 MILLIGRAM STARTED AFTER MAR-2008
     Dates: start: 20080101
  2. LISINOPRIL [Concomitant]

REACTIONS (2)
  - ASTHENIA [None]
  - TREMOR [None]
